FAERS Safety Report 23154575 (Version 1)
Quarter: 2023Q4

REPORT INFORMATION
  Report Type: Spontaneous
  Country: US (occurrence: US)
  Receive Date: 20231107
  Receipt Date: 20231107
  Transmission Date: 20240110
  Serious: No
  Sender: FDA-Public Use
  Company Number: US-ABBVIE-5480980

PATIENT

DRUGS (1)
  1. IMBRUVICA [Suspect]
     Active Substance: IBRUTINIB
     Indication: Product used for unknown indication
     Dosage: STRENGTH: 280 MG?TAKE 1 TABLET BY MONTH, ONCE DAILY
     Route: 048

REACTIONS (3)
  - Foot fracture [Unknown]
  - Pneumonia [Unknown]
  - Soft tissue injury [Unknown]
